FAERS Safety Report 7731782-9 (Version None)
Quarter: 2011Q3

REPORT INFORMATION
  Report Type: 
  Country: None (occurrence: None)
  Receive Date: 20110906
  Receipt Date: 20110831
  Transmission Date: 20111222
  Serious: Yes (Other)
  Sender: FDA-Public Use
  Company Number: PHHO2006ES19296

PATIENT
  Sex: Female
  Weight: 76 kg

DRUGS (1)
  1. GILENYA [Suspect]
     Indication: MULTIPLE SCLEROSIS
     Dosage: 125 UNK, UNK
     Route: 048
     Dates: start: 20040909, end: 20061113

REACTIONS (1)
  - SUPERFICIAL SPREADING MELANOMA STAGE UNSPECIFIED [None]
